FAERS Safety Report 6909437-X (Version None)
Quarter: 2010Q3

REPORT INFORMATION
  Report Type: 
  Country: None (occurrence: None)
  Receive Date: 20100805
  Receipt Date: 20100802
  Transmission Date: 20110219
  Serious: Yes (Death)
  Sender: FDA-Public Use
  Company Number: US-JNJCH-A035654

PATIENT
  Age: 14 Year
  Sex: Male

DRUGS (2)
  1. CETIRIZINE HYDROCHLORIDE [Suspect]
     Indication: HYPERSENSITIVITY
     Route: 048
  2. PREDNISONE [Suspect]
     Indication: HYPERSENSITIVITY
     Route: 065

REACTIONS (1)
  - HYPERSENSITIVITY [None]
